FAERS Safety Report 8443262-6 (Version None)
Quarter: 2012Q2

REPORT INFORMATION
  Report Type: 
  Country: None (occurrence: None)
  Receive Date: 20120617
  Receipt Date: 20120527
  Transmission Date: 20120825
  Serious: Yes (Other)
  Sender: FDA-Public Use
  Company Number: PHHY2011VN92407

PATIENT
  Sex: Male

DRUGS (2)
  1. IMATINIB MESYLATE [Suspect]
     Dosage: 600 MG PER DAY
     Route: 048
     Dates: start: 20110501, end: 20111018
  2. IMATINIB MESYLATE [Suspect]
     Indication: GASTROINTESTINAL STROMAL TUMOUR
     Dosage: 400 MG, PER DAY
     Route: 048
     Dates: start: 20081021, end: 20110501

REACTIONS (8)
  - DYSCHEZIA [None]
  - NO THERAPEUTIC RESPONSE [None]
  - DRUG RESISTANCE [None]
  - GENERAL PHYSICAL HEALTH DETERIORATION [None]
  - NEOPLASM MALIGNANT [None]
  - METASTASES TO PERITONEUM [None]
  - DYSURIA [None]
  - GASTROINTESTINAL STROMAL TUMOUR [None]
